FAERS Safety Report 15311026 (Version 1)
Quarter: 2018Q4

REPORT INFORMATION
  Report Type: Report from Study
  Country: CN (occurrence: CN)
  Receive Date: 20180823
  Receipt Date: 20180823
  Transmission Date: 20190204
  Serious: Yes (Death)
  Sender: FDA-Public Use
  Company Number: CN-PFIZER INC-2018339165

PATIENT
  Age: 10 Month
  Sex: Male

DRUGS (5)
  1. MEROPENEM. [Suspect]
     Active Substance: MEROPENEM
     Indication: TOXIC SHOCK SYNDROME STREPTOCOCCAL
     Dosage: UNK
  2. VANCOMYCIN [Suspect]
     Active Substance: VANCOMYCIN
     Indication: TOXIC SHOCK SYNDROME STREPTOCOCCAL
     Dosage: UNK
  3. IMMUNOGLOBULIN HUMAN NORMAL [Suspect]
     Active Substance: HUMAN IMMUNOGLOBULIN G
     Indication: TOXIC SHOCK SYNDROME STREPTOCOCCAL
     Dosage: UNK
     Route: 042
  4. PIPERACILLIN/SULBACTAM [Suspect]
     Active Substance: PIPERACILLIN\SULBACTAM
     Indication: TOXIC SHOCK SYNDROME STREPTOCOCCAL
     Dosage: UNK (INFUSION)
     Route: 042
  5. CEFOTAXIME [Suspect]
     Active Substance: CEFOTAXIME SODIUM
     Indication: TOXIC SHOCK SYNDROME STREPTOCOCCAL
     Dosage: UNK (INFUSION)
     Route: 042

REACTIONS (1)
  - Drug ineffective [Fatal]
